FAERS Safety Report 21320441 (Version 1)
Quarter: 2022Q3

REPORT INFORMATION
  Report Type: Spontaneous
  Country: US (occurrence: US)
  Receive Date: 20220911
  Receipt Date: 20220911
  Transmission Date: 20221026
  Serious: Yes (Other)
  Sender: FDA-Public Use
  Company Number: US-JNJFOC-20200507580

PATIENT
  Sex: Female

DRUGS (4)
  1. TREMFYA [Suspect]
     Active Substance: GUSELKUMAB
     Indication: Psoriasis
     Route: 065
  2. TREMFYA [Suspect]
     Active Substance: GUSELKUMAB
  3. TREMFYA [Suspect]
     Active Substance: GUSELKUMAB
  4. ACITRETIN [Suspect]
     Active Substance: ACITRETIN
     Indication: Psoriasis
     Route: 065

REACTIONS (6)
  - Respiratory tract infection [Unknown]
  - Nasopharyngitis [Unknown]
  - Ear infection [Unknown]
  - Drug ineffective [Unknown]
  - Colitis [Unknown]
  - Oral herpes [Unknown]

NARRATIVE: CASE EVENT DATE: 20180101
